FAERS Safety Report 19459174 (Version 1)
Quarter: 2021Q2

REPORT INFORMATION
  Report Type: Spontaneous
  Country: JP (occurrence: JP)
  Receive Date: 20210624
  Receipt Date: 20210624
  Transmission Date: 20210717
  Serious: Yes (Hospitalization)
  Sender: FDA-Public Use
  Company Number: JP-UPSHER-SMITH LABORATORIES, LLC-2021USL00450

PATIENT
  Age: 35 Year
  Sex: Male

DRUGS (1)
  1. TESTOSTERONE. [Suspect]
     Active Substance: TESTOSTERONE
     Indication: GENDER DYSPHORIA
     Dosage: 125?250 MG, EVERY 3 WEEKS
     Route: 065

REACTIONS (1)
  - Chronic inflammatory demyelinating polyradiculoneuropathy [Recovered/Resolved]
